FAERS Safety Report 23292251 (Version 1)
Quarter: 2023Q4

REPORT INFORMATION
  Report Type: Spontaneous
  Country: US (occurrence: None)
  Receive Date: 20231212
  Receipt Date: 20231212
  Transmission Date: 20240109
  Serious: Yes (Disabling)
  Sender: FDA-Public Use
  Company Number: None

PATIENT
  Age: 56 Year
  Sex: Female
  Weight: 74.7 kg

DRUGS (6)
  1. INGREZZA [Suspect]
     Active Substance: VALBENAZINE
     Indication: Tardive dyskinesia
     Dates: start: 20170101, end: 20230701
  2. ABILIFY [Concomitant]
     Active Substance: ARIPIPRAZOLE
  3. INVEGA [Concomitant]
     Active Substance: PALIPERIDONE
  4. LAMICTAL [Concomitant]
  5. DIAZEPAM [Concomitant]
     Active Substance: DIAZEPAM
  6. HERBALS\TURMERIC [Concomitant]
     Active Substance: HERBALS\TURMERIC

REACTIONS (2)
  - Parkinsonism [None]
  - Product complaint [None]

NARRATIVE: CASE EVENT DATE: 20180101
